FAERS Safety Report 9020624 (Version 1)
Quarter: 2013Q1

REPORT INFORMATION
  Report Type: Spontaneous
  Country: US (occurrence: US)
  Receive Date: 20130119
  Receipt Date: 20130119
  Transmission Date: 20140127
  Serious: Yes (Death, Hospitalization, Other)
  Sender: FDA-Public Use
  Company Number: US-UCBSA-074689

PATIENT
  Age: 45 Year
  Sex: Male

DRUGS (5)
  1. NITROGLYCERIN [Suspect]
     Route: 048
  2. ATORVASTATIN/AMLODIPINE [Suspect]
     Route: 048
  3. GLYBURIDE + METFORMIN [Suspect]
     Route: 048
  4. HYDROCHLOROTHIAZIDE/LOSARTAN [Suspect]
     Route: 048
  5. LISINOPRIL [Suspect]
     Route: 048

REACTIONS (2)
  - Completed suicide [Fatal]
  - Incorrect route of drug administration [Unknown]
